FAERS Safety Report 19482786 (Version 1)
Quarter: 2021Q3

REPORT INFORMATION
  Report Type: Spontaneous
  Country: US (occurrence: US)
  Receive Date: 20210701
  Receipt Date: 20210701
  Transmission Date: 20211014
  Serious: No
  Sender: FDA-Public Use
  Company Number: US-KRAMERLABS-2020-US-019203

PATIENT
  Age: 82 Year
  Sex: Female
  Weight: 63.05 kg

DRUGS (5)
  1. WELLBUTRIN [Concomitant]
     Active Substance: BUPROPION HYDROCHLORIDE
  2. VENLAFAXINE [Concomitant]
     Active Substance: VENLAFAXINE HYDROCHLORIDE
  3. ARITIPRAZOLE [Concomitant]
  4. NIZORAL A?D [Suspect]
     Active Substance: KETOCONAZOLE
     Indication: PRURITUS
     Dosage: USING ON THE FACE AS PRESCRIBED BY DOCTOR
     Route: 061
     Dates: start: 20200917
  5. ROSUVASTATIN. [Concomitant]
     Active Substance: ROSUVASTATIN

REACTIONS (2)
  - Therapeutic response unexpected [Not Recovered/Not Resolved]
  - Off label use [Not Recovered/Not Resolved]

NARRATIVE: CASE EVENT DATE: 20200917
